FAERS Safety Report 8168992-5 (Version None)
Quarter: 2012Q1

REPORT INFORMATION
  Report Type: 
  Country: None (occurrence: None)
  Receive Date: 20120227
  Receipt Date: 20120217
  Transmission Date: 20120608
  Serious: Yes (Other)
  Sender: FDA-Public Use
  Company Number: PHHY2012TW014791

PATIENT
  Age: 31 Year
  Sex: Male

DRUGS (1)
  1. TOPIRAMATE [Suspect]

REACTIONS (3)
  - PREMATURE EJACULATION [None]
  - ERECTILE DYSFUNCTION [None]
  - INFERTILITY MALE [None]
